FAERS Safety Report 12578794 (Version 1)
Quarter: 2016Q3

REPORT INFORMATION
  Report Type: Spontaneous
  Country: US (occurrence: None)
  Receive Date: 20160720
  Receipt Date: 20160720
  Transmission Date: 20161109
  Serious: Yes (Hospitalization, Other)
  Sender: FDA-Public Use
  Company Number: None

PATIENT
  Age: 76 Year
  Sex: Female
  Weight: 66.5 kg

DRUGS (1)
  1. RITUXIMAB [Suspect]
     Active Substance: RITUXIMAB
     Indication: RHEUMATOID ARTHRITIS
     Route: 041
     Dates: start: 20160718

REACTIONS (5)
  - Infusion site reaction [None]
  - Anxiety [None]
  - Acute myocardial infarction [None]
  - Palpitations [None]
  - Dizziness [None]

NARRATIVE: CASE EVENT DATE: 20160718
